FAERS Safety Report 8179874-7 (Version None)
Quarter: 2012Q1

REPORT INFORMATION
  Report Type: 
  Country: None (occurrence: None)
  Receive Date: 20120229
  Receipt Date: 20120215
  Transmission Date: 20120608
  Serious: Yes (Other)
  Sender: FDA-Public Use
  Company Number: 2012P1003843

PATIENT
  Age: 70 Year
  Sex: Female
  Weight: 51.7101 kg

DRUGS (7)
  1. AMITIZA [Concomitant]
  2. MORPHINE [Concomitant]
  3. PROCHLORPER SUPPOSITORIES [Concomitant]
  4. ZOFRAN [Concomitant]
  5. METOCLOPRAMIDE [Concomitant]
  6. FENTANYL-100 [Suspect]
     Indication: BACK PAIN
     Dosage: 1 PATCH;Q72H;TDER; 1 PATCH;Q72H;TDER
     Route: 062
     Dates: start: 20110901, end: 20110901
  7. FENTANYL-100 [Suspect]
     Indication: BACK PAIN
     Dosage: 1 PATCH;Q72H;TDER; 1 PATCH;Q72H;TDER
     Route: 062
     Dates: start: 20120123, end: 20120201

REACTIONS (11)
  - BREAST CANCER RECURRENT [None]
  - ABNORMAL BEHAVIOUR [None]
  - HYPOPNOEA [None]
  - DRUG WITHDRAWAL SYNDROME [None]
  - DIZZINESS [None]
  - TREMOR [None]
  - NAUSEA [None]
  - ABDOMINAL PAIN UPPER [None]
  - BENIGN BREAST NEOPLASM [None]
  - DRUG EFFECT DECREASED [None]
  - SOMNOLENCE [None]
